FAERS Safety Report 7841819-4 (Version None)
Quarter: 2011Q4

REPORT INFORMATION
  Report Type: 
  Country: None (occurrence: None)
  Receive Date: 20111025
  Receipt Date: 20111013
  Transmission Date: 20120403
  Serious: Yes (Other)
  Sender: FDA-Public Use
  Company Number: BR-AMGEN-BRASP2011053705

PATIENT
  Age: 40 Year
  Sex: Female
  Weight: 59 kg

DRUGS (8)
  1. CARISOPRODOL [Concomitant]
     Indication: MUSCULOSKELETAL PAIN
     Dosage: 100 MG, BID
     Dates: start: 20111005
  2. ENBREL [Suspect]
     Indication: ARTHRITIS
     Dosage: 50 MG, WEEKLY
     Route: 058
     Dates: start: 20090101
  3. PANTOPRAZOLE [Concomitant]
     Indication: MUSCULOSKELETAL PAIN
     Dosage: 10 MG, BID
     Dates: start: 20111005
  4. MIRTAZAPINE [Concomitant]
     Dosage: 15 MG, QD
     Dates: start: 20111013
  5. CITALOPRAM HYDROBROMIDE [Concomitant]
     Indication: SOMNOLENCE
     Dosage: UNK
     Dates: start: 20111005
  6. TRAMADOL HCL [Concomitant]
     Indication: MUSCULOSKELETAL PAIN
     Dosage: 5 MG, BID
     Dates: start: 20111005
  7. AMITRIPTYLINE HCL [Concomitant]
     Dosage: 25 MG, QD
     Dates: start: 20111013
  8. ACETAMINOPHEN [Concomitant]
     Indication: MUSCULOSKELETAL PAIN
     Dosage: 400 MG, BID
     Dates: start: 20111005

REACTIONS (4)
  - RHEUMATOID ARTHRITIS [None]
  - INJECTION SITE PAIN [None]
  - INJECTION SITE SWELLING [None]
  - WRONG TECHNIQUE IN DRUG USAGE PROCESS [None]
